FAERS Safety Report 22818674 (Version 2)
Quarter: 2023Q4

REPORT INFORMATION
  Report Type: Report from Study
  Country: JP (occurrence: JP)
  Receive Date: 20230814
  Receipt Date: 20231031
  Transmission Date: 20240110
  Serious: Yes (Death, Other)
  Sender: FDA-Public Use
  Company Number: JP-GSKJP-JP2023JPN104864AA

PATIENT

DRUGS (3)
  1. MEPOLIZUMAB [Suspect]
     Active Substance: MEPOLIZUMAB
     Indication: Allergic bronchopulmonary mycosis
     Dosage: UNK
  2. PREDNISOLONE [Concomitant]
     Active Substance: PREDNISOLONE
     Dosage: 5 MG, QD
  3. ITRACONAZOLE [Concomitant]
     Active Substance: ITRACONAZOLE
     Dosage: UNK

REACTIONS (7)
  - Bronchopulmonary aspergillosis [Fatal]
  - Condition aggravated [Fatal]
  - Overgrowth fungal [Unknown]
  - Lung infiltration [Unknown]
  - Productive cough [Unknown]
  - Product use in unapproved indication [Unknown]
  - Off label use [Unknown]
